FAERS Safety Report 20831394 (Version 2)
Quarter: 2022Q2

REPORT INFORMATION
  Report Type: Spontaneous
  Country: US (occurrence: US)
  Receive Date: 20220516
  Receipt Date: 20220606
  Transmission Date: 20220721
  Serious: Yes (Other)
  Sender: FDA-Public Use
  Company Number: ENDG22-00862

PATIENT
  Sex: Female

DRUGS (1)
  1. BOSENTAN [Suspect]
     Active Substance: BOSENTAN
     Indication: Product used for unknown indication
     Dosage: UNK UNKNOWN, UNKNOWN
     Route: 065

REACTIONS (2)
  - Neoplasm malignant [Unknown]
  - Product label issue [Unknown]

NARRATIVE: CASE EVENT DATE: 20220101
